FAERS Safety Report 15907583 (Version 2)
Quarter: 2019Q2

REPORT INFORMATION
  Report Type: Report from Study
  Country: US (occurrence: US)
  Receive Date: 20190204
  Receipt Date: 20190624
  Transmission Date: 20190711
  Serious: No
  Sender: FDA-Public Use
  Company Number: US-SA-2019SA030285

PATIENT
  Age: 71 Year
  Sex: Female

DRUGS (1)
  1. ALIROCUMAB [Suspect]
     Active Substance: ALIROCUMAB
     Indication: HYPERCHOLESTEROLAEMIA
     Dosage: 75 MG, QOW
     Route: 058
     Dates: start: 20190103

REACTIONS (5)
  - Headache [Unknown]
  - Product dose omission [Unknown]
  - Sinusitis [Unknown]
  - Lymphadenopathy [Unknown]
  - Sinus disorder [Unknown]

NARRATIVE: CASE EVENT DATE: 201901
